FAERS Safety Report 7819531-7 (Version None)
Quarter: 2011Q4

REPORT INFORMATION
  Report Type: 
  Country: None (occurrence: None)
  Receive Date: 20111018
  Receipt Date: 20110322
  Transmission Date: 20120403
  Serious: No
  Sender: FDA-Public Use
  Company Number: US-ASTRAZENECA-2011SE16049

PATIENT
  Age: 58 Year
  Sex: Female

DRUGS (2)
  1. SYMBICORT [Suspect]
     Indication: ASTHMA
     Dosage: 160/4.5 MICROGRAMS TWO TIMES A DAY
     Route: 055
  2. SYMBICORT [Suspect]
     Indication: WHEEZING
     Dosage: 160/4.5 MICROGRAMS TWO TIMES A DAY
     Route: 055

REACTIONS (3)
  - TONGUE COATED [None]
  - THROAT IRRITATION [None]
  - MOUTH ULCERATION [None]
